FAERS Safety Report 8540023 (Version 5)
Quarter: 2013Q4

REPORT INFORMATION
  Report Type: Spontaneous
  Country: US (occurrence: None)
  Receive Date: 20120315
  Receipt Date: 20131226
  Transmission Date: 20140711
  Serious: Yes (Other)
  Sender: FDA-Public Use
  Company Number: PHHY2010US76513

PATIENT
  Age: 38 Year
  Sex: Male
  Weight: 180 kg

DRUGS (1)
  1. GILENYA (FTY) CAPSULE [Suspect]
     Indication: MULTIPLE SCLEROSIS
     Dosage: 0.5 MG, QD, ORAL ; 0.5 MG, QOD, ORAL
     Route: 048
     Dates: start: 201010

REACTIONS (9)
  - White blood cell disorder [None]
  - Incorrect drug administration duration [None]
  - Muscle spasms [None]
  - Pain in extremity [None]
  - Nasopharyngitis [None]
  - Memory impairment [None]
  - Fatigue [None]
  - Chills [None]
  - Inappropriate schedule of drug administration [None]
